FAERS Safety Report 23248659 (Version 3)
Quarter: 2025Q2

REPORT INFORMATION
  Report Type: Spontaneous
  Country: FR (occurrence: FR)
  Receive Date: 20231201
  Receipt Date: 20250527
  Transmission Date: 20250717
  Serious: Yes (Hospitalization, Other)
  Sender: Haleon PLC
  Company Number: FR-AFSSAPS-CN2023000965

PATIENT
  Age: 60 Year
  Sex: Female
  Weight: 76.5 kg

DRUGS (8)
  1. DICLOFENAC SODIUM [Suspect]
     Active Substance: DICLOFENAC SODIUM
     Indication: Tendonitis
     Dosage: 75 MG, QD (DICLOFENAC SODIUM LP 75 MG 1 TABLET MORNING + EVENING FOR 10 DAYS)
     Route: 048
     Dates: start: 20230918, end: 20230928
  2. ESOMEPRAZOLE SODIUM [Suspect]
     Active Substance: ESOMEPRAZOLE SODIUM
     Indication: Prophylaxis against gastrointestinal ulcer
     Dosage: 20 MG, QD (ESOMEPRAZOLE 20 MG 1 TAB EVERY EVENING
     Route: 048
     Dates: start: 20230918, end: 20230928
  3. ACETYLCYSTEINE [Concomitant]
     Active Substance: ACETYLCYSTEINE
     Indication: Product used for unknown indication
     Dosage: 200 MG, TID (ACETYLCYSTEINE 200MG 1 SACHET 3X/DAY FOR 5 TO 7 DAYS)
     Route: 048
     Dates: start: 20230918, end: 20230924
  4. ACETYLCYSTEINE [Concomitant]
     Active Substance: ACETYLCYSTEINE
     Dosage: 400 MG, QD (200 MG 2 SACHETS IN THE MORNING FOR 5 DAYS)
     Route: 048
     Dates: start: 20230915, end: 20230918
  5. LAMALINE (ACETAMINOPHEN\CAFFEINE\OPIUM) [Suspect]
     Active Substance: ACETAMINOPHEN\CAFFEINE\OPIUM
     Indication: Tendonitis
     Dosage: 340 MG, QD (LAMALINE 340MG 3 TO 5 CAPSULES IF SEVERE PAIN PER DAY)
     Route: 048
     Dates: start: 20230915, end: 20230918
  6. ACETYLCYSTEINE\BENZALKONIUM CHLORIDE\TUAMINOHEPTANE SULFATE [Concomitant]
     Active Substance: ACETYLCYSTEINE\BENZALKONIUM CHLORIDE\TUAMINOHEPTANE SULFATE
     Indication: Product used for unknown indication
     Dosage: 10 ML, QD (RHINOFLUIMUCIL 10 ML 2 SPRAY 3 TO 4X/DAY FOR 3 TO 5 DAYS), RESPIRATORY (INHALATION)
     Dates: start: 20230915, end: 20230920
  7. ACETAMINOPHEN\OPIUM [Suspect]
     Active Substance: ACETAMINOPHEN\OPIUM
     Indication: Tendonitis
     Dosage: 500 MG, QD (IZALGI 500MG/25MG 1 CAPSULE 3 TO 4X/DAY, 1 BOX IF SEVERE PAIN)
     Route: 048
     Dates: start: 20230918, end: 20230922
  8. AMBROXOL HYDROCHLORIDE [Concomitant]
     Active Substance: AMBROXOL HYDROCHLORIDE
     Indication: Product used for unknown indication
     Dosage: 20 MG, QD (LYSOPAINE LEMON20MG 1 TABLET 3 TO 6X/DAY FOR 1 TO 3 DAYS)
     Route: 048
     Dates: start: 20230915, end: 20230918

REACTIONS (2)
  - Hepatitis acute [Recovering/Resolving]
  - Pancreatitis acute [Recovering/Resolving]

NARRATIVE: CASE EVENT DATE: 20230928
